FAERS Safety Report 8349321-0 (Version None)
Quarter: 2012Q2

REPORT INFORMATION
  Report Type: 
  Country: None (occurrence: None)
  Receive Date: 20120510
  Receipt Date: 20120508
  Transmission Date: 20120825
  Serious: Yes (Death, Hospitalization, Other)
  Sender: FDA-Public Use
  Company Number: PHEH2009US02712

PATIENT
  Sex: Male

DRUGS (63)
  1. VITAMIN E [Concomitant]
  2. SPIRIVA [Concomitant]
  3. ADVAIR DISKUS 100/50 [Concomitant]
  4. VALSARTAN [Concomitant]
     Dosage: 80 MG, QD
  5. ZOMETA [Suspect]
     Dosage: 4 MG, QMO
     Route: 042
     Dates: start: 20030421, end: 20041013
  6. VASOTEC [Concomitant]
  7. NORVASC [Concomitant]
  8. REQUIP [Concomitant]
  9. SOTALOL HCL [Concomitant]
  10. ACTOS [Concomitant]
  11. NEURONTIN [Concomitant]
     Dosage: 600 MG, TID
  12. AZELASTINE HCL [Concomitant]
  13. METOLAZONE [Concomitant]
     Dosage: 2.5 MG
  14. LYRICA [Concomitant]
  15. ASPIRIN [Concomitant]
  16. NASONEX [Concomitant]
  17. ALBUTEROL [Concomitant]
  18. DEXAMETHASONE [Concomitant]
     Dates: end: 20100429
  19. DIOVAN [Concomitant]
     Dosage: 180 MG
  20. ATENOLOL [Concomitant]
  21. MOTRIN [Concomitant]
  22. ACYCLOVIR [Concomitant]
  23. MIRALAX [Concomitant]
  24. MEXILETINE HYDROCHLORIDE [Concomitant]
     Dosage: 200 MG, TID
  25. FOLATE SODIUM [Concomitant]
  26. DOCUSATE SODIUM [Concomitant]
     Dosage: 100 MG, BID
  27. NYSTATIN [Concomitant]
  28. HYDROCHLOROTHIAZIDE [Concomitant]
  29. GLUCOTROL [Concomitant]
  30. GABAPENTIN [Concomitant]
     Dosage: 600 MG, TID
  31. VENTOLIN [Concomitant]
  32. TEMAZEPAM [Concomitant]
     Dosage: 15 MG
  33. TUSSIONEX [Concomitant]
  34. LIPITOR [Concomitant]
  35. TENORMIN [Concomitant]
  36. FOLIC ACID [Concomitant]
  37. PLAVIX [Concomitant]
     Dosage: 75 MG, QD
  38. PROTONIX [Concomitant]
     Dosage: 40 MG, QD
  39. CYCLOPHOSPHAMIDE [Concomitant]
     Dosage: 100 MG, QD
  40. CYTOXAN [Concomitant]
     Dosage: 100 MG, QD
  41. METFORMIN HCL [Concomitant]
     Dosage: 500 MG
  42. FLONASE [Concomitant]
  43. PANTOPRAZOLE SODIUM [Concomitant]
     Dosage: 40 MG
  44. PROCRIT                            /00909301/ [Concomitant]
  45. REVLIMID [Concomitant]
     Dates: end: 20100429
  46. PROCRIT [Concomitant]
     Dates: start: 20030421
  47. PREDNISONE TAB [Concomitant]
     Dates: start: 20030421
  48. DULCOLAX [Concomitant]
  49. LISINOPRIL [Concomitant]
     Dosage: 2.5 MG, QD
  50. AMITRIPTYLINE HCL [Concomitant]
  51. CARAZOLOL [Concomitant]
     Dosage: 3.125 MG, BID
  52. FOLTX [Concomitant]
  53. SYMBICORT [Concomitant]
  54. ALKERAN [Concomitant]
  55. PREDNISOLONE [Concomitant]
  56. THALIDOMIDE [Concomitant]
  57. LASIX [Concomitant]
  58. HYDROCODONE BITARTRATE [Concomitant]
  59. FLUCONAZOLE [Concomitant]
  60. POTASSIUM CHLORIDE [Concomitant]
     Dosage: 30 MEQ, QD
  61. ALLEGRA [Concomitant]
  62. AMLODIPINE [Concomitant]
     Dosage: 10 MG
  63. CARVEDILOL [Concomitant]
     Dosage: 3.125 MG, BID
     Route: 048

REACTIONS (92)
  - DIABETES MELLITUS [None]
  - PARAESTHESIA [None]
  - INFECTION [None]
  - TOOTHACHE [None]
  - COUGH [None]
  - NEUTROPENIA [None]
  - ACUTE SINUSITIS [None]
  - PRODUCTIVE COUGH [None]
  - PALPITATIONS [None]
  - HYPOKALAEMIA [None]
  - PROSTATOMEGALY [None]
  - ILEUS [None]
  - SMALL INTESTINAL OBSTRUCTION [None]
  - PERIPHERAL VASCULAR DISORDER [None]
  - DYSPNOEA [None]
  - OEDEMA PERIPHERAL [None]
  - ANAEMIA [None]
  - LUNG HYPERINFLATION [None]
  - SLEEP APNOEA SYNDROME [None]
  - CONJUNCTIVAL HAEMORRHAGE [None]
  - CARDIOMEGALY [None]
  - RHINITIS ALLERGIC [None]
  - LEUKOPENIA [None]
  - CARDIAC FAILURE CONGESTIVE [None]
  - NEPHROLITHIASIS [None]
  - MUSCLE SPASMS [None]
  - PAIN [None]
  - PLEURAL EFFUSION [None]
  - EMPHYSEMA [None]
  - PANCYTOPENIA [None]
  - FACET JOINT SYNDROME [None]
  - PULMONARY FIBROSIS [None]
  - SNORING [None]
  - ABDOMINAL PAIN [None]
  - MALIGNANT MELANOMA [None]
  - OPTIC ATROPHY [None]
  - NEUROPATHY PERIPHERAL [None]
  - TOOTH ABSCESS [None]
  - CATARACT [None]
  - RETINITIS [None]
  - WEIGHT INCREASED [None]
  - CONSTIPATION [None]
  - PALLOR [None]
  - AORTIC CALCIFICATION [None]
  - CHEST DISCOMFORT [None]
  - IRITIS [None]
  - INSOMNIA [None]
  - LUNG NEOPLASM [None]
  - OROPHARYNGEAL PAIN [None]
  - UPPER LIMB FRACTURE [None]
  - SPUTUM PURULENT [None]
  - HILAR LYMPHADENOPATHY [None]
  - IDIOPATHIC PULMONARY FIBROSIS [None]
  - PULMONARY CONGESTION [None]
  - ISCHAEMIC CARDIOMYOPATHY [None]
  - FIBROSIS [None]
  - SWELLING FACE [None]
  - DIVERTICULUM [None]
  - INTERVERTEBRAL DISC DEGENERATION [None]
  - ARTERIOSCLEROSIS CORONARY ARTERY [None]
  - HYPOXIA [None]
  - BRADYCARDIA [None]
  - DEATH [None]
  - HYPOAESTHESIA [None]
  - RESTLESS LEGS SYNDROME [None]
  - DEFORMITY [None]
  - DENTAL CARIES [None]
  - BRONCHIECTASIS [None]
  - EXOSTOSIS [None]
  - ATELECTASIS [None]
  - MYOCARDIAL ISCHAEMIA [None]
  - RESPIRATORY DISTRESS [None]
  - PRESYNCOPE [None]
  - VENTRICULAR ARRHYTHMIA [None]
  - INGUINAL HERNIA [None]
  - KERATOACANTHOMA [None]
  - HYDRONEPHROSIS [None]
  - CALCULUS URETERIC [None]
  - THROMBOCYTOPENIA [None]
  - OBESITY [None]
  - KERATITIS [None]
  - OSTEONECROSIS OF JAW [None]
  - OSTEOMYELITIS [None]
  - ERYTHEMA [None]
  - MACULAR HOLE [None]
  - INTERSTITIAL LUNG DISEASE [None]
  - VISUAL ACUITY REDUCED [None]
  - UPPER RESPIRATORY TRACT INFECTION [None]
  - WHEEZING [None]
  - LEFT VENTRICULAR DYSFUNCTION [None]
  - LYMPHADENOPATHY MEDIASTINAL [None]
  - PULMONARY HYPERTENSION [None]
